FAERS Safety Report 6106723-0 (Version None)
Quarter: 2009Q1

REPORT INFORMATION
  Report Type: 
  Country: None (occurrence: None)
  Receive Date: 20090305
  Receipt Date: 20090216
  Transmission Date: 20090719
  Serious: Yes (Life-Threatening)
  Sender: FDA-Public Use
  Company Number: 20090050

PATIENT
  Age: 87 Year
  Sex: Female
  Weight: 53.5244 kg

DRUGS (3)
  1. HYDRALAZINE HCL [Suspect]
     Indication: HYPERTENSION
     Dosage: 20 MG INTRAVENOUS
     Route: 042
     Dates: start: 20090204
  2. CLEVIPREX [Suspect]
     Indication: HYPERTENSION
     Dosage: INTRAVENOUS
     Route: 042
  3. METOPROLOL TARTRATE [Suspect]
     Indication: HYPERTENSION
     Dosage: 25 MG, PRN ORAL
     Route: 048

REACTIONS (8)
  - BRADYCARDIA [None]
  - CARDIOMEGALY [None]
  - ELECTROCARDIOGRAM QT PROLONGED [None]
  - LEFT VENTRICULAR HYPERTROPHY [None]
  - MYOCARDIAL INFARCTION [None]
  - PLEURAL EFFUSION [None]
  - PULMONARY CONGESTION [None]
  - TACHYCARDIA [None]
